FAERS Safety Report 4855666-9 (Version None)
Quarter: 2005Q4

REPORT INFORMATION
  Report Type: 
  Country: None (occurrence: None)
  Receive Date: 20051216
  Receipt Date: 20041126
  Transmission Date: 20060501
  Serious: Yes (Other)
  Sender: FDA-Public Use
  Company Number: PHBS2004CH16133

PATIENT
  Age: 85 Year
  Sex: Female

DRUGS (1)
  1. AREDIA [Suspect]
     Indication: OSTEOLYSIS
     Dosage: 90 MG, QMO
     Route: 042
     Dates: start: 20031201

REACTIONS (6)
  - BONE PAIN [None]
  - IMPAIRED HEALING [None]
  - OSTEITIS [None]
  - OSTEONECROSIS [None]
  - SURGERY [None]
  - TOOTH EXTRACTION [None]
